FAERS Safety Report 22325115 (Version 1)
Quarter: 2023Q2

REPORT INFORMATION
  Report Type: Report from Study
  Country: US (occurrence: None)
  Receive Date: 20230516
  Receipt Date: 20230516
  Transmission Date: 20230722
  Serious: Yes (Other)
  Sender: FDA-Public Use
  Company Number: US-ROCHE-3349324

PATIENT

DRUGS (46)
  1. RITUXIMAB [Suspect]
     Active Substance: RITUXIMAB
     Indication: Burkitt^s lymphoma
     Dosage: 915 MG
     Route: 065
     Dates: start: 20160220, end: 20160220
  2. RITUXIMAB [Suspect]
     Active Substance: RITUXIMAB
     Dosage: 844 MG
     Route: 065
     Dates: start: 20160312, end: 20160312
  3. RITUXIMAB [Suspect]
     Active Substance: RITUXIMAB
     Dosage: 840 MG
     Route: 065
     Dates: start: 20160404, end: 20160404
  4. RITUXIMAB [Suspect]
     Active Substance: RITUXIMAB
     Dosage: 840 MG
     Route: 065
     Dates: start: 20160425, end: 20160425
  5. RITUXIMAB [Suspect]
     Active Substance: RITUXIMAB
     Dosage: 840 MG
     Route: 065
     Dates: start: 20160601, end: 20160601
  6. RITUXIMAB [Suspect]
     Active Substance: RITUXIMAB
     Dosage: 840 MG
     Route: 065
     Dates: start: 20160629, end: 20160629
  7. CYCLOPHOSPHAMIDE [Suspect]
     Active Substance: CYCLOPHOSPHAMIDE
     Indication: Burkitt^s lymphoma
     Dosage: 1830 MG
     Route: 065
     Dates: start: 20160225, end: 20160225
  8. CYCLOPHOSPHAMIDE [Suspect]
     Active Substance: CYCLOPHOSPHAMIDE
     Dosage: 1688 MG
     Route: 065
     Dates: start: 20160317, end: 20160317
  9. CYCLOPHOSPHAMIDE [Suspect]
     Active Substance: CYCLOPHOSPHAMIDE
     Dosage: 2000 MG
     Route: 065
     Dates: start: 20160408, end: 20160408
  10. CYCLOPHOSPHAMIDE [Suspect]
     Active Substance: CYCLOPHOSPHAMIDE
     Dosage: 2410 MG
     Route: 065
     Dates: start: 20160429, end: 20160429
  11. CYCLOPHOSPHAMIDE [Suspect]
     Active Substance: CYCLOPHOSPHAMIDE
     Dosage: 2410 MG
     Route: 065
     Dates: start: 20160605, end: 20160605
  12. CYCLOPHOSPHAMIDE [Suspect]
     Active Substance: CYCLOPHOSPHAMIDE
     Dosage: 2410 MG
     Route: 065
     Dates: start: 20160703, end: 20160703
  13. DOXORUBICIN [Suspect]
     Active Substance: DOXORUBICIN
     Indication: Burkitt^s lymphoma
     Dosage: 97.6 MG
     Route: 065
     Dates: start: 20160221, end: 20160224
  14. DOXORUBICIN [Suspect]
     Active Substance: DOXORUBICIN
     Dosage: 90 MG
     Route: 065
     Dates: start: 20160312, end: 20160316
  15. DOXORUBICIN [Suspect]
     Active Substance: DOXORUBICIN
     Dosage: 108 MG
     Route: 065
     Dates: start: 20160404, end: 20160407
  16. DOXORUBICIN [Suspect]
     Active Substance: DOXORUBICIN
     Dosage: 128 MG
     Route: 065
     Dates: start: 20160425, end: 20160428
  17. DOXORUBICIN [Suspect]
     Active Substance: DOXORUBICIN
     Dosage: 128 MG
     Route: 065
     Dates: start: 20160601, end: 20160604
  18. DOXORUBICIN [Suspect]
     Active Substance: DOXORUBICIN
     Dosage: 128 MG
     Route: 065
     Dates: start: 20160629, end: 20160702
  19. ETOPOSIDE [Suspect]
     Active Substance: ETOPOSIDE
     Indication: Burkitt^s lymphoma
     Dosage: 488 MG
     Route: 065
     Dates: start: 20160221, end: 20160224
  20. ETOPOSIDE [Suspect]
     Active Substance: ETOPOSIDE
     Dosage: 450 MG
     Route: 065
     Dates: start: 20160312, end: 20160316
  21. ETOPOSIDE [Suspect]
     Active Substance: ETOPOSIDE
     Dosage: 536 MG
     Route: 065
     Dates: start: 20160404, end: 20160407
  22. ETOPOSIDE [Suspect]
     Active Substance: ETOPOSIDE
     Dosage: 644 MG
     Route: 065
     Dates: start: 20160425, end: 20160428
  23. ETOPOSIDE [Suspect]
     Active Substance: ETOPOSIDE
     Dosage: 644 MG
     Route: 065
     Dates: start: 20160601, end: 20160604
  24. ETOPOSIDE [Suspect]
     Active Substance: ETOPOSIDE
     Dosage: 644 MG
     Route: 065
     Dates: start: 20160629, end: 20160702
  25. FILGRASTIM [Suspect]
     Active Substance: FILGRASTIM
     Indication: Burkitt^s lymphoma
     Dosage: 2400 MCG
     Route: 065
     Dates: start: 20160505, end: 20160509
  26. METHOTREXATE [Suspect]
     Active Substance: METHOTREXATE
     Indication: Burkitt^s lymphoma
     Dosage: 12 MG
     Route: 065
     Dates: start: 20160408, end: 20160408
  27. METHOTREXATE [Suspect]
     Active Substance: METHOTREXATE
     Dosage: 12 MG
     Route: 065
     Dates: start: 20160404, end: 20160404
  28. METHOTREXATE [Suspect]
     Active Substance: METHOTREXATE
     Dosage: 12 MG
     Route: 065
     Dates: start: 20160425, end: 20160425
  29. METHOTREXATE [Suspect]
     Active Substance: METHOTREXATE
     Dosage: 12 MG
     Route: 065
     Dates: start: 20160429, end: 20160429
  30. PEGFILGRASTIM [Suspect]
     Active Substance: PEGFILGRASTIM
     Indication: Burkitt^s lymphoma
     Dosage: 6 MG
     Route: 065
     Dates: start: 20160225, end: 20160225
  31. PEGFILGRASTIM [Suspect]
     Active Substance: PEGFILGRASTIM
     Dosage: 6 MG
     Route: 065
     Dates: start: 20160318, end: 20160318
  32. PEGFILGRASTIM [Suspect]
     Active Substance: PEGFILGRASTIM
     Dosage: 6 MG
     Route: 065
     Dates: start: 20160411, end: 20160411
  33. PEGFILGRASTIM [Suspect]
     Active Substance: PEGFILGRASTIM
     Dosage: 6 MG
     Route: 065
     Dates: start: 20160607, end: 20160607
  34. PEGFILGRASTIM [Suspect]
     Active Substance: PEGFILGRASTIM
     Dosage: 6 MG
     Route: 065
     Dates: start: 20160705, end: 20160705
  35. PREDNISONE [Suspect]
     Active Substance: PREDNISONE
     Indication: Burkitt^s lymphoma
     Dosage: 1500 MG
     Route: 065
     Dates: start: 20160220, end: 20160225
  36. PREDNISONE [Suspect]
     Active Substance: PREDNISONE
     Dosage: 1500 MG
     Route: 065
     Dates: start: 20160312, end: 20160317
  37. PREDNISONE [Suspect]
     Active Substance: PREDNISONE
     Dosage: 1430 MG
     Route: 065
     Dates: start: 20160404, end: 20160409
  38. PREDNISONE [Suspect]
     Active Substance: PREDNISONE
     Dosage: 1300 MG
     Route: 065
     Dates: start: 20160425, end: 20160430
  39. PREDNISONE [Suspect]
     Active Substance: PREDNISONE
     Dosage: 1300 MG
     Route: 065
     Dates: start: 20160601, end: 20160605
  40. PREDNISONE [Suspect]
     Active Substance: PREDNISONE
     Dosage: 1300 MG
     Route: 065
     Dates: start: 20160629, end: 20160704
  41. VINCRISTINE [Suspect]
     Active Substance: VINCRISTINE
     Indication: Burkitt^s lymphoma
     Dosage: 3.92 MG
     Route: 065
     Dates: start: 20160221, end: 20160224
  42. VINCRISTINE [Suspect]
     Active Substance: VINCRISTINE
     Dosage: 3.6 MG
     Route: 065
     Dates: start: 20160312, end: 20160316
  43. VINCRISTINE [Suspect]
     Active Substance: VINCRISTINE
     Dosage: 3.6 MG
     Route: 065
     Dates: start: 20160404, end: 20160407
  44. VINCRISTINE [Suspect]
     Active Substance: VINCRISTINE
     Dosage: 3.6 MG
     Route: 065
     Dates: start: 20160425, end: 20160428
  45. VINCRISTINE [Suspect]
     Active Substance: VINCRISTINE
     Dosage: 3.9 MG
     Route: 065
     Dates: start: 20160601, end: 20160604
  46. VINCRISTINE [Suspect]
     Active Substance: VINCRISTINE
     Dosage: 3.6 MG
     Route: 065
     Dates: start: 20160629, end: 20160702

REACTIONS (4)
  - Febrile neutropenia [Recovered/Resolved]
  - Haemorrhage intracranial [Recovered/Resolved]
  - Embolism [Unknown]
  - Oedema peripheral [Recovered/Resolved]

NARRATIVE: CASE EVENT DATE: 20160225
